FAERS Safety Report 17038187 (Version 2)
Quarter: 2019Q4

REPORT INFORMATION
  Report Type: Spontaneous
  Country: US (occurrence: US)
  Receive Date: 20191115
  Receipt Date: 20191225
  Transmission Date: 20200122
  Serious: No
  Sender: FDA-Public Use
  Company Number: US-ASTRAZENECA-2019SF49455

PATIENT
  Age: 745 Month
  Sex: Female
  Weight: 45.4 kg

DRUGS (3)
  1. SYMBICORT [Suspect]
     Active Substance: BUDESONIDE\FORMOTEROL FUMARATE DIHYDRATE
     Indication: ASTHMA
     Dosage: 160-4.5 MCG 2 PUFFS BID
     Route: 055
     Dates: start: 2014
  2. SYMBICORT [Suspect]
     Active Substance: BUDESONIDE\FORMOTEROL FUMARATE DIHYDRATE
     Indication: ASTHMA
     Dosage: 160-4.5 MCG 1 PUFF BID
     Route: 055
  3. ALBUTEROL SULFATE, PROAIR [Concomitant]
     Indication: ASTHMA
     Dosage: AS REQUIRED
     Route: 055

REACTIONS (6)
  - Incorrect dose administered [Not Recovered/Not Resolved]
  - Drug delivery system malfunction [Unknown]
  - Chest discomfort [Not Recovered/Not Resolved]
  - Device failure [Unknown]
  - General physical health deterioration [Not Recovered/Not Resolved]
  - Intentional product misuse [Not Recovered/Not Resolved]

NARRATIVE: CASE EVENT DATE: 201910
